FAERS Safety Report 6033040-X (Version None)
Quarter: 2009Q1

REPORT INFORMATION
  Report Type: 
  Country: None (occurrence: None)
  Receive Date: 20090107
  Receipt Date: 20081223
  Transmission Date: 20090719
  Serious: Yes (Death)
  Sender: FDA-Public Use
  Company Number: DSA_32968_2009

PATIENT
  Age: 46 Year
  Sex: Male

DRUGS (3)
  1. DILTIAZEM [Suspect]
     Dosage: 240 MG 1X, NOT THE PRESCRIBED AMOUNT
  2. AMLODIPINE BESYLATE [Suspect]
     Dosage: 10 MG 1 X, NOT THE PRESCRIBED AMOUNT
  3. LABETALOL HCL [Suspect]
     Dosage: 400 MG 1X, NOT THE PRESCRIBED AMOUNT

REACTIONS (11)
  - ABDOMINAL PAIN [None]
  - BLOOD GLUCOSE INCREASED [None]
  - BODY TEMPERATURE DECREASED [None]
  - BRADYCARDIA [None]
  - CARDIAC ARREST [None]
  - CARDIOMEGALY [None]
  - CORONARY ARTERY DISEASE [None]
  - HYPOTENSION [None]
  - INCORRECT DOSE ADMINISTERED [None]
  - NAUSEA [None]
  - RESPIRATORY RATE INCREASED [None]
